FAERS Safety Report 26058577 (Version 1)
Quarter: 2025Q4

REPORT INFORMATION
  Report Type: Report from Study
  Country: US (occurrence: US)
  Receive Date: 20251118
  Receipt Date: 20251118
  Transmission Date: 20260118
  Serious: Yes (Other)
  Sender: AUROBINDO
  Company Number: US-AUROBINDO-AUR-APL-2025-057600

PATIENT
  Age: 80 Year
  Sex: Male

DRUGS (2)
  1. PREDNISOLONE [Suspect]
     Active Substance: PREDNISOLONE
     Indication: Pseudophakia
     Dosage: 1 PERCENT, FOUR TIMES/DAY
  2. KETOROLAC [Suspect]
     Active Substance: KETOROLAC TROMETHAMINE
     Indication: Pseudophakia
     Dosage: 0.5 PERCENT, FOUR TIMES/DAY
     Route: 065

REACTIONS (1)
  - Drug ineffective [Unknown]
